FAERS Safety Report 5760377-1 (Version None)
Quarter: 2008Q2

REPORT INFORMATION
  Report Type: 
  Country: None (occurrence: None)
  Receive Date: 20080602
  Receipt Date: 20080422
  Transmission Date: 20081010
  Serious: Yes (Other)
  Sender: FDA-Public Use
  Company Number: TPH-00045

PATIENT
  Age: 43 Year
  Sex: Female

DRUGS (2)
  1. LOGYNON ED, [Suspect]
     Indication: ORAL CONTRACEPTION
     Dosage: ORAL
     Route: 048
     Dates: end: 20070901
  2. PAROXETINE HCL [Concomitant]

REACTIONS (6)
  - ASCITES [None]
  - GALACTORRHOEA [None]
  - MESOTHELIOMA MALIGNANT [None]
  - PERITONITIS [None]
  - PLEURAL EFFUSION [None]
  - TUMOUR MARKER INCREASED [None]
